FAERS Safety Report 16946444 (Version 2)
Quarter: 2020Q1

REPORT INFORMATION
  Report Type: Spontaneous
  Country: JP (occurrence: JP)
  Receive Date: 20191022
  Receipt Date: 20200101
  Transmission Date: 20200409
  Serious: Yes (Other)
  Sender: FDA-Public Use
  Company Number: JP-ASTRAZENECA-2019SF50027

PATIENT
  Age: 49 Year
  Sex: Female

DRUGS (9)
  1. FASLODEX [Suspect]
     Active Substance: FULVESTRANT
     Indication: BREAST CANCER
     Route: 030
     Dates: start: 201803, end: 201809
  2. DENOSUMAB(GENETICAL RECOMBINATION) [Concomitant]
     Indication: BREAST CANCER
     Dosage: DOSE UNKNOWN
     Route: 065
     Dates: start: 201701
  3. TAXOL [Concomitant]
     Active Substance: PACLITAXEL
     Indication: BREAST CANCER
     Dosage: DOSE UNKNOWN
     Route: 065
     Dates: start: 201701
  4. BEVACIZUMAB(GENETICAL RECOMBINATION) [Concomitant]
     Active Substance: BEVACIZUMAB
     Indication: BREAST CANCER
     Dosage: DOSE UNKNOWN
     Route: 065
     Dates: start: 201701
  5. ADRIACIN [Concomitant]
     Active Substance: DOXORUBICIN HYDROCHLORIDE
     Indication: BREAST CANCER
     Dosage: DOSE UNKNOWN
     Route: 065
  6. LYNPARZA [Suspect]
     Active Substance: OLAPARIB
     Indication: BREAST CANCER
     Route: 048
     Dates: start: 201902
  7. PALBOCICLIB [Concomitant]
     Active Substance: PALBOCICLIB
     Indication: BREAST CANCER
     Dosage: DOSE UNKNOWN
     Route: 065
     Dates: start: 201806
  8. CYCLOPHOSPHAMIDE HYDRATE [Concomitant]
     Active Substance: CYCLOPHOSPHAMIDE
     Indication: BREAST CANCER
     Dosage: DOSE UNKNOWN
     Route: 065
  9. ARIMIDEX [Suspect]
     Active Substance: ANASTROZOLE
     Indication: BREAST CANCER
     Route: 048
     Dates: start: 201501, end: 201612

REACTIONS (10)
  - Metastases to bone [Unknown]
  - Tumour marker increased [Unknown]
  - Metastases to pleura [Unknown]
  - Metastases to lung [Unknown]
  - Nervous system disorder [Unknown]
  - Metastases to adrenals [Unknown]
  - Pleural effusion [Unknown]
  - Invasive ductal breast carcinoma [Unknown]
  - Malignant neoplasm progression [Unknown]
  - Myalgia [Recovering/Resolving]

NARRATIVE: CASE EVENT DATE: 201612
